FAERS Safety Report 21871270 (Version 2)
Quarter: 2023Q1

REPORT INFORMATION
  Report Type: Report from Study
  Country: FR (occurrence: FR)
  Receive Date: 20230117
  Receipt Date: 20230123
  Transmission Date: 20230417
  Serious: Yes (Other)
  Sender: FDA-Public Use
  Company Number: FR-ABBVIE-4271907

PATIENT
  Sex: Female

DRUGS (1)
  1. HUMIRA [Suspect]
     Active Substance: ADALIMUMAB
     Indication: Crohn^s disease
     Route: 058

REACTIONS (3)
  - Knee arthroplasty [Unknown]
  - Joint effusion [Unknown]
  - Gingival abscess [Unknown]

NARRATIVE: CASE EVENT DATE: 20221101
